FAERS Safety Report 8052012-7 (Version None)
Quarter: 2012Q1

REPORT INFORMATION
  Report Type: 
  Country: None (occurrence: None)
  Receive Date: 20120111
  Receipt Date: 20111226
  Transmission Date: 20120608
  Serious: Yes (Other)
  Sender: FDA-Public Use
  Company Number: JP-1189030

PATIENT
  Age: 56 Year
  Sex: Male

DRUGS (1)
  1. FLUORESCITE [Suspect]
     Indication: ANGIOGRAM RETINA
     Dosage: 5ML INTRAVENOUS BOLUS
     Route: 040
     Dates: start: 20111111, end: 20111111

REACTIONS (1)
  - ANAPHYLACTOID REACTION [None]
